FAERS Safety Report 6442429-6 (Version None)
Quarter: 2009Q4

REPORT INFORMATION
  Report Type: 
  Country: None (occurrence: None)
  Receive Date: 20091112
  Receipt Date: 20091102
  Transmission Date: 20100525
  Serious: Yes (Hospitalization)
  Sender: FDA-Public Use
  Company Number: ADR46232009

PATIENT
  Sex: Male

DRUGS (7)
  1. SIMVASTATIN [Suspect]
     Indication: BLOOD CHOLESTEROL INCREASED
     Dosage: 40 MG, 1 DAYS ORAL
     Route: 048
     Dates: start: 20060110, end: 20061210
  2. ASPIRIN [Concomitant]
  3. FYBOGEL [Concomitant]
  4. LACTULOSE [Concomitant]
  5. LOSARTAN [Concomitant]
  6. QUININE [Concomitant]
  7. SULPHATE [Concomitant]

REACTIONS (1)
  - CHEST PAIN [None]
